FAERS Safety Report 23361309 (Version 2)
Quarter: 2024Q1

REPORT INFORMATION
  Report Type: Report from Study
  Country: US (occurrence: US)
  Receive Date: 20240103
  Receipt Date: 20240207
  Transmission Date: 20240409
  Serious: Yes (Hospitalization)
  Sender: FDA-Public Use
  Company Number: US-TAIHOP-2023-006231

PATIENT
  Age: 78 Year
  Sex: Female
  Weight: 75.93 kg

DRUGS (1)
  1. LONSURF [Suspect]
     Active Substance: TIPIRACIL HYDROCHLORIDE\TRIFLURIDINE
     Indication: Colon cancer
     Dosage: CYCLE 1-7.  FORM STRENGTH UNKNOWN
     Route: 048
     Dates: start: 20230710

REACTIONS (8)
  - Urinary tract infection [Unknown]
  - Oropharyngeal pain [Unknown]
  - Abdominal pain [Unknown]
  - Constipation [Unknown]
  - Malaise [Unknown]
  - Sinus disorder [Unknown]
  - Dysphonia [Unknown]
  - Dry skin [Unknown]
